FAERS Safety Report 9544168 (Version 1)
Quarter: 2013Q2

REPORT INFORMATION
  Report Type: Spontaneous
  Country: US (occurrence: None)
  Receive Date: 20130524
  Receipt Date: 20130524
  Transmission Date: 20140414
  Serious: Yes (Other)
  Sender: FDA-Public Use
  Company Number: PHEH2013US001934

PATIENT
  Age: 54 Year
  Sex: Female

DRUGS (9)
  1. GILENYA [Suspect]
     Indication: MULTIPLE SCLEROSIS
     Route: 048
     Dates: start: 201210
  2. AMPYRA [Suspect]
     Dates: start: 201202
  3. LYRICA (PREGABALIN) [Concomitant]
  4. FISH OIL (FISH OIL) [Concomitant]
  5. VENLAFAXINE (VENLAFAXINE) [Concomitant]
  6. ASPIRIN (ACETYLSALIC ACID) [Concomitant]
  7. CALCIUM + VIT D (CALCIUM CARBONATE, VITAMIN D NOS) [Concomitant]
  8. COPAXONE (GLATIRAMER ACETATE) [Concomitant]
  9. MULTI-VIT (VITAMINS NOS) [Concomitant]

REACTIONS (1)
  - Bronchitis [None]
